FAERS Safety Report 9109397 (Version 5)
Quarter: 2013Q2

REPORT INFORMATION
  Report Type: Spontaneous
  Country: JP (occurrence: JP)
  Receive Date: 20130222
  Receipt Date: 20130411
  Transmission Date: 20140414
  Serious: Yes (Hospitalization)
  Sender: FDA-Public Use
  Company Number: JP-ABBOTT-13P-087-1051744-00

PATIENT
  Age: 25 Year
  Sex: Female

DRUGS (22)
  1. HUMIRA [Suspect]
     Indication: CROHN^S DISEASE
     Route: 058
     Dates: start: 20101211, end: 20101211
  2. HUMIRA [Suspect]
     Dates: start: 20110105, end: 20110105
  3. HUMIRA [Suspect]
     Dates: start: 20110119
  4. TIQUIZIUM BROMIDE [Concomitant]
     Indication: CROHN^S DISEASE
     Route: 048
  5. LOPERAMIDE HYDROCHLORIDE [Concomitant]
     Indication: CROHN^S DISEASE
     Route: 048
  6. MESALAZINE [Concomitant]
     Indication: CROHN^S DISEASE
     Route: 048
  7. MESALAZINE [Concomitant]
     Route: 048
  8. PREDNISOLONE [Concomitant]
     Indication: CROHN^S DISEASE
     Dosage: 5-15 MG 2-3 TIMES PER DAY
     Route: 048
  9. RABEPRAZOLE SODIUM [Concomitant]
     Indication: CROHN^S DISEASE
     Route: 048
  10. AMINO ACID/GLUCOSE/ELECTROLYTES/VITAMIN B1 [Concomitant]
     Indication: PARENTERAL NUTRITION
     Route: 042
     Dates: start: 20130206
  11. GLUCOSE/ELECTROLYTES/AMINO ACIDS [Concomitant]
     Indication: PARENTERAL NUTRITION
     Route: 042
     Dates: start: 20130206
  12. SOY BEAN OIL [Concomitant]
     Indication: PARENTERAL NUTRITION
     Route: 042
     Dates: start: 20130206
  13. BLONANSERIN [Concomitant]
     Indication: PRODUCT USED FOR UNKNOWN INDICATION
  14. RAMELTEON [Concomitant]
     Indication: PRODUCT USED FOR UNKNOWN INDICATION
  15. ARIPIPRAZOLE [Concomitant]
     Indication: PRODUCT USED FOR UNKNOWN INDICATION
  16. BROTIZOLAM [Concomitant]
     Indication: PRODUCT USED FOR UNKNOWN INDICATION
  17. REBAMIPIDE [Concomitant]
     Indication: CROHN^S DISEASE
  18. SODIUM FERROUS CITRATE [Concomitant]
     Indication: PRODUCT USED FOR UNKNOWN INDICATION
  19. PARENTERAL NUTRITION [Concomitant]
     Indication: CROHN^S DISEASE
     Dosage: 3 - 4 TIMES PER DAY
  20. CELECOXIB [Concomitant]
     Indication: PRODUCT USED FOR UNKNOWN INDICATION
  21. MIDAZOLAM [Concomitant]
     Indication: PRODUCT USED FOR UNKNOWN INDICATION
  22. BERBERINE CHLORIDE HYDRATE/GERANIUM HERB EXTRACT [Concomitant]
     Indication: CROHN^S DISEASE
     Route: 048

REACTIONS (6)
  - Crohn^s disease [Recovered/Resolved]
  - False positive investigation result [Recovered/Resolved]
  - Abdominal pain [Recovered/Resolved]
  - Diarrhoea [Unknown]
  - Pyrexia [Recovered/Resolved]
  - Platelet count decreased [Recovered/Resolved]
